FAERS Safety Report 8418732-7 (Version None)
Quarter: 2012Q2

REPORT INFORMATION
  Report Type: 
  Country: None (occurrence: None)
  Receive Date: 20120607
  Receipt Date: 20120529
  Transmission Date: 20120825
  Serious: Yes (Other)
  Sender: FDA-Public Use
  Company Number: US-ASTRAZENECA-2012SE34589

PATIENT
  Age: 62 Year
  Sex: Male
  Weight: 72.6 kg

DRUGS (5)
  1. CLONAZEPAM [Concomitant]
  2. NEXIUM [Suspect]
     Route: 048
  3. NEXIUM [Suspect]
     Indication: GASTROOESOPHAGEAL REFLUX DISEASE
     Route: 048
  4. FLUOXETINE [Concomitant]
  5. WARFARIN SODIUM [Concomitant]

REACTIONS (2)
  - TONGUE NEOPLASM MALIGNANT STAGE UNSPECIFIED [None]
  - DYSPHAGIA [None]
